FAERS Safety Report 4848138-9 (Version None)
Quarter: 2005Q4

REPORT INFORMATION
  Report Type: 
  Country: None (occurrence: None)
  Receive Date: 20051208
  Receipt Date: 20051114
  Transmission Date: 20060501
  Serious: Yes (Other)
  Sender: FDA-Public Use
  Company Number: FR-BOEHRINGER INGELHEIM PHARMACEUTICALS, INC.-2005-DE-05171GL

PATIENT
  Age: 80 Year
  Sex: Male

DRUGS (1)
  1. TELMISARTAN [Suspect]
     Indication: HYPERTENSION
     Route: 048

REACTIONS (1)
  - MACULAR DEGENERATION [None]
